FAERS Safety Report 8090751-2 (Version None)
Quarter: 2012Q1

REPORT INFORMATION
  Report Type: 
  Country: None (occurrence: None)
  Receive Date: 20120124
  Receipt Date: 20120110
  Transmission Date: 20120608
  Serious: Yes (Disabling, Other)
  Sender: FDA-Public Use
  Company Number: 2011MA002901

PATIENT
  Sex: Male

DRUGS (36)
  1. CLONIDINE [Concomitant]
  2. TIZANIDINE HCL [Concomitant]
  3. AMITIZA [Suspect]
  4. SIMVASTATIN [Concomitant]
  5. JANUVIA [Concomitant]
  6. PANTOPRAZOLE [Concomitant]
  7. COZAAR [Concomitant]
  8. BUTALBITOL [Concomitant]
  9. NAPROXEN [Concomitant]
  10. AMITRIPTYLINE HCL [Suspect]
  11. MIRALAX [Concomitant]
  12. LACTULOSE [Concomitant]
  13. FUROSEMIDE [Concomitant]
  14. PROPOXYPHENE HYDROCHLORIDE [Concomitant]
  15. HYCOSAMINE [Concomitant]
  16. SUCRALFATE [Concomitant]
  17. BACLOFEN [Concomitant]
  18. PLAVIX [Concomitant]
  19. ZOLPIDEM [Suspect]
  20. OXYCODONE HCL AND ACETAMINOPHEN [Concomitant]
  21. SOMA [Concomitant]
  22. CEPHALEXIN [Concomitant]
  23. DIAZEPAM [Concomitant]
  24. ALBUTEROL [Concomitant]
  25. ALPRAZOLAM [Concomitant]
  26. TRAZODONE HCL [Suspect]
  27. APAP TAB [Concomitant]
  28. OXYCODONE HCL [Concomitant]
  29. SINGULAIR [Suspect]
  30. METHYLPREDNISOLONE [Concomitant]
  31. METOCLOPRAMIDE [Suspect]
     Indication: GASTROINTESTINAL DISORDER
     Dosage: 10 MG;QID;
     Dates: start: 20090319, end: 20091217
  32. TRICOR [Concomitant]
  33. VERAPAMIL [Concomitant]
  34. GLYBURIDE [Concomitant]
  35. ALLOPURINOL [Concomitant]
  36. PROMETHAZINE [Concomitant]

REACTIONS (6)
  - ECONOMIC PROBLEM [None]
  - EXTRAPYRAMIDAL DISORDER [None]
  - TARDIVE DYSKINESIA [None]
  - PAIN [None]
  - ANXIETY [None]
  - FAMILY STRESS [None]
